FAERS Safety Report 9558724 (Version 1)
Quarter: 2013Q3

REPORT INFORMATION
  Report Type: Spontaneous
  Country: US (occurrence: US)
  Receive Date: 20130926
  Receipt Date: 20130926
  Transmission Date: 20140515
  Serious: No
  Sender: FDA-Public Use
  Company Number: US-BIOGENIDEC-2013BI046232

PATIENT
  Age: 40 Year
  Sex: Female

DRUGS (5)
  1. TECFIDERA [Suspect]
     Indication: PRODUCT USED FOR UNKNOWN INDICATION
     Route: 048
  2. MIRCETTE [Concomitant]
  3. VALIUM [Concomitant]
  4. CYCLOBENZAPRINE [Concomitant]
  5. ONDANSETRON HCI [Concomitant]

REACTIONS (1)
  - Diarrhoea [Unknown]
